FAERS Safety Report 5652561-2 (Version None)
Quarter: 2008Q1

REPORT INFORMATION
  Report Type: 
  Country: None (occurrence: None)
  Receive Date: 20080306
  Receipt Date: 20080305
  Transmission Date: 20080703
  Serious: Yes (Hospitalization, Other)
  Sender: FDA-Public Use
  Company Number: US-BRISTOL-MYERS SQUIBB COMPANY-13887435

PATIENT
  Age: 65 Year
  Sex: Male

DRUGS (5)
  1. COUMADIN [Suspect]
     Route: 048
  2. PLAVIX [Suspect]
     Indication: STENT PLACEMENT
     Dosage: 75 MG BID. INTERRUPTED IN 2007.
     Route: 048
     Dates: start: 20070201
  3. PLAVIX [Suspect]
     Indication: ANGIOPLASTY
     Dosage: 75 MG BID. INTERRUPTED IN 2007.
     Route: 048
     Dates: start: 20070201
  4. ASPIRIN [Suspect]
     Indication: ANGIOPLASTY
     Dosage: TAKEN AS TABS.
     Route: 048
     Dates: start: 20070201
  5. ASPIRIN [Suspect]
     Indication: STENT PLACEMENT
     Dosage: TAKEN AS TABS.
     Route: 048
     Dates: start: 20070201

REACTIONS (7)
  - CARDIAC FAILURE CONGESTIVE [None]
  - CARDIOGENIC SHOCK [None]
  - CHEST PAIN [None]
  - DRUG INEFFECTIVE [None]
  - MYOCARDIAL INFARCTION [None]
  - OVERDOSE [None]
  - THROMBOSIS IN DEVICE [None]
